FAERS Safety Report 16431673 (Version 2)
Quarter: 2019Q2

REPORT INFORMATION
  Report Type: Spontaneous
  Country: US (occurrence: US)
  Receive Date: 20190614
  Receipt Date: 20190626
  Transmission Date: 20190711
  Serious: No
  Sender: FDA-Public Use
  Company Number: US-KRAMERLABS-2019-US-003502

PATIENT
  Age: 76 Year
  Sex: Female
  Weight: 108.86 kg

DRUGS (1)
  1. NIZORAL A-D [Suspect]
     Active Substance: KETOCONAZOLE
     Indication: PRODUCT USED FOR UNKNOWN INDICATION
     Dosage: IN 3 DAY
     Route: 061
     Dates: start: 2018

REACTIONS (5)
  - Weight increased [Not Recovered/Not Resolved]
  - Skin exfoliation [Unknown]
  - Nodule [Not Recovered/Not Resolved]
  - Dandruff [Not Recovered/Not Resolved]
  - Pruritus [Not Recovered/Not Resolved]

NARRATIVE: CASE EVENT DATE: 2018
